FAERS Safety Report 17631769 (Version 1)
Quarter: 2020Q2

REPORT INFORMATION
  Report Type: Spontaneous
  Country: US (occurrence: US)
  Receive Date: 20200406
  Receipt Date: 20200406
  Transmission Date: 20200713
  Serious: No
  Sender: FDA-Public Use
  Company Number: None

PATIENT
  Age: 70 Year
  Sex: Female
  Weight: 117 kg

DRUGS (24)
  1. DULERA AER 200-5MCG [Concomitant]
  2. ASMANEX HFA AER 200 MCG [Concomitant]
  3. MERIVA 500-SF [Concomitant]
  4. OXYBUTYNIN CHLORIDE TAB 10MG ER [Concomitant]
  5. PIOGLITAZONE HCL TAB 30MG [Concomitant]
  6. RHODIOLA [Concomitant]
     Active Substance: HERBALS
  7. METFORMIN HCL TAB 1000 ER [Concomitant]
  8. LOSARTAN POTASSIUM/HYDROCHLOROTHIAZIDE TAB 50-12.5 [Concomitant]
  9. OMEGAGENICS EPA-DHA 1000 [Concomitant]
  10. A-DRENAL [Concomitant]
  11. ORON BISCLYCINATE [Concomitant]
  12. META FEM BASIC NUTIENTS [Concomitant]
  13. NUCALA [Suspect]
     Active Substance: MEPOLIZUMAB
     Indication: ASTHMA
     Dosage: ?          QUANTITY:3 INJECTION(S);OTHER FREQUENCY:MONTHLY;?
     Route: 058
     Dates: start: 20200204
  14. PROAIR HFA AER/ALBUTEROL PRN [Concomitant]
  15. COENZYMATE B COMPLEX [Concomitant]
  16. OMEPRAZOLE CAP 40MG [Concomitant]
     Active Substance: OMEPRAZOLE
  17. EPIPEN [Concomitant]
     Active Substance: EPINEPHRINE
  18. GLIMEPIRIDE TAB 4MG [Concomitant]
  19. MONTELUKAST SODIUM TAB 10MG [Concomitant]
  20. SACCHARMOMYCES BOULARDII + MOS [Concomitant]
  21. ESCITALOPRAM OXALATE TAB 20MG [Concomitant]
  22. VITAMIN D-3 25,000 [Concomitant]
  23. CALAPATITE BONE BUILDER [Concomitant]
  24. C-1000 WITH BIOLAVONOIDS [Concomitant]

REACTIONS (6)
  - Asthenia [None]
  - Eye irritation [None]
  - Arthralgia [None]
  - Abdominal pain lower [None]
  - Myalgia [None]
  - Dizziness [None]

NARRATIVE: CASE EVENT DATE: 20200403
